FAERS Safety Report 13933858 (Version 2)
Quarter: 2017Q4

REPORT INFORMATION
  Report Type: Spontaneous
  Country: US (occurrence: US)
  Receive Date: 20170904
  Receipt Date: 20171109
  Transmission Date: 20180320
  Serious: Yes (Hospitalization)
  Sender: FDA-Public Use
  Company Number: US-DSJP-DSU-2017-134638

PATIENT

DRUGS (1)
  1. BENICAR HCT [Suspect]
     Active Substance: HYDROCHLOROTHIAZIDE\OLMESARTAN MEDOXOMIL
     Indication: PRODUCT USED FOR UNKNOWN INDICATION
     Dosage: 40/25 MG, QD
     Route: 048
     Dates: start: 20070804, end: 20160902

REACTIONS (8)
  - Hiatus hernia [Not Recovered/Not Resolved]
  - Diverticulum intestinal [Unknown]
  - Helicobacter infection [Unknown]
  - Cholelithiasis [Not Recovered/Not Resolved]
  - Gastrointestinal disorder [Recovered/Resolved]
  - Renal failure [Not Recovered/Not Resolved]
  - Dehydration [Recovered/Resolved]
  - Constipation [Unknown]

NARRATIVE: CASE EVENT DATE: 20090325
